FAERS Safety Report 6295994-6 (Version None)
Quarter: 2009Q3

REPORT INFORMATION
  Report Type: 
  Country: None (occurrence: None)
  Receive Date: 20090804
  Receipt Date: 20090727
  Transmission Date: 20100115
  Serious: Yes (Life-Threatening, Hospitalization)
  Sender: FDA-Public Use
  Company Number: PHHY2009DE31409

PATIENT
  Sex: Female
  Weight: 80 kg

DRUGS (4)
  1. TASIGNA [Suspect]
     Indication: CHRONIC MYELOID LEUKAEMIA
     Dosage: 800 MG/DAY
     Route: 048
     Dates: start: 20090203
  2. BISOPROLOL [Concomitant]
  3. MAGNETRANS [Concomitant]
  4. HORMONES [Concomitant]

REACTIONS (1)
  - MYOCARDIAL INFARCTION [None]
